FAERS Safety Report 9259505 (Version 1)
Quarter: 2013Q2

REPORT INFORMATION
  Report Type: Spontaneous
  Country: US (occurrence: US)
  Receive Date: 20130428
  Receipt Date: 20130428
  Transmission Date: 20140414
  Serious: Yes (Other)
  Sender: FDA-Public Use
  Company Number: US201001003865

PATIENT
  Age: 49 Year
  Sex: Female
  Weight: 101.59 kg

DRUGS (17)
  1. BYETTA PEN DISPOSABLE [Suspect]
     Route: 058
     Dates: start: 20061108, end: 200709
  2. EXENATIDE UNK STRENGTH PEN, DISPOSABLE DEVICE [Concomitant]
  3. HYDROCODONE [Concomitant]
     Indication: ANALGESIC THERAPY
  4. LASIX [Concomitant]
     Indication: FLUID RETENTION
     Route: 048
  5. CELEBREX [Concomitant]
     Indication: INFLAMMATION
     Dates: start: 1999
  6. NOVOLOG [Concomitant]
     Indication: DIABETES MELLITUS
  7. TRICOR [Concomitant]
     Indication: HYPERCHOLESTEROLAEMIA
  8. ACARBOSE [Concomitant]
     Indication: DIABETES MELLITUS
  9. CALCIUM [Concomitant]
  10. ACETAMINOPHEN [Concomitant]
  11. NEXIUM [Concomitant]
     Indication: GASTROOESOPHAGEAL REFLUX DISEASE
  12. VITAMIN D [Concomitant]
     Dates: start: 2007, end: 2009
  13. AMBIEN [Concomitant]
     Indication: INSOMNIA
  14. LOTREL [Concomitant]
  15. METOPROLOL [Concomitant]
  16. HCTZ [Concomitant]
  17. NOVOLIN 70/30 [Concomitant]

REACTIONS (3)
  - Pancreatitis acute [Unknown]
  - Pancreatitis relapsing [Unknown]
  - Off label use [Recovered/Resolved]
